FAERS Safety Report 8954339 (Version 1)
Quarter: 2012Q4

REPORT INFORMATION
  Report Type: 
  Country: NZ (occurrence: NZ)
  Receive Date: 20121210
  Receipt Date: 20121210
  Transmission Date: 20130627
  Serious: Yes (Hospitalization)
  Sender: FDA-Public Use
  Company Number: NZ-009507513-1212NZL000943

PATIENT
  Age: 67 Year
  Sex: Female

DRUGS (2)
  1. AVANZA [Suspect]
     Dosage: 0.5 DF,
     Dates: start: 20121120, end: 20121123
  2. AVANZA [Suspect]
     Dosage: 1 DF, UNK
     Dates: start: 20121124, end: 20121124

REACTIONS (7)
  - Abasia [Unknown]
  - Physical disability [Unknown]
  - Depressed mood [Unknown]
  - Restlessness [Unknown]
  - Insomnia [Unknown]
  - Syncope [Unknown]
  - Refusal of treatment by patient [Unknown]
